FAERS Safety Report 18777856 (Version 5)
Quarter: 2021Q2

REPORT INFORMATION
  Report Type: Spontaneous
  Country: US (occurrence: US)
  Receive Date: 20210122
  Receipt Date: 20210518
  Transmission Date: 20210717
  Serious: Yes (Hospitalization, Other)
  Sender: FDA-Public Use
  Company Number: 2020SGN03554

PATIENT
  Sex: Female

DRUGS (3)
  1. CAPECITABINE. [Concomitant]
     Active Substance: CAPECITABINE
     Indication: BREAST CANCER FEMALE
     Dosage: 1000MG IN THE MORNING AND 1000MG IN THE EVENING
     Dates: start: 20200910
  2. TUKYSA [Suspect]
     Active Substance: TUCATINIB
     Indication: BREAST CANCER FEMALE
     Dosage: UNK UNK, BID
  3. TUKYSA [Suspect]
     Active Substance: TUCATINIB
     Dosage: UNK, BID

REACTIONS (27)
  - Brain operation [Unknown]
  - Unevaluable event [Unknown]
  - Erythema [Unknown]
  - Osteolysis [Unknown]
  - Pigmentation disorder [Not Recovered/Not Resolved]
  - Radiation necrosis [Unknown]
  - Diarrhoea [Unknown]
  - Faeces pale [Unknown]
  - Skin discolouration [Unknown]
  - Lip blister [Unknown]
  - Seizure [Unknown]
  - Blood count abnormal [Unknown]
  - Sinusitis [Unknown]
  - Surgery [Unknown]
  - Decreased activity [Unknown]
  - Platelet count decreased [Recovering/Resolving]
  - Hepatic enzyme increased [Unknown]
  - Nausea [Unknown]
  - Abdominal pain upper [Unknown]
  - Lip pain [Unknown]
  - Muscle spasms [Unknown]
  - Metastases to bone [Unknown]
  - Neuropathy peripheral [Unknown]
  - Skin exfoliation [Not Recovered/Not Resolved]
  - Product dose omission issue [Unknown]
  - Dry mouth [Unknown]
  - Vomiting [Unknown]
